FAERS Safety Report 8953186 (Version 1)
Quarter: 2012Q4

REPORT INFORMATION
  Report Type: 
  Country: ES (occurrence: ES)
  Receive Date: 20121206
  Receipt Date: 20121206
  Transmission Date: 20130627
  Serious: Yes (Other)
  Sender: FDA-Public Use
  Company Number: ES-MERCK-1212ESP000802

PATIENT
  Age: 48 Year
  Sex: Male

DRUGS (4)
  1. NOXAFIL [Suspect]
     Indication: ANTIFUNGAL PROPHYLAXIS
     Dosage: 200 mg, q8h
     Route: 048
     Dates: start: 20121121, end: 20121124
  2. AMBISOME [Suspect]
     Indication: EVIDENCE BASED TREATMENT
     Dosage: UNK
     Route: 042
     Dates: start: 20121124
  3. IDARUBICIN HYDROCHLORIDE [Suspect]
     Indication: ACUTE MYELOID LEUKAEMIA
  4. ARA-C [Suspect]
     Indication: ACUTE MYELOID LEUKAEMIA

REACTIONS (5)
  - Transaminases increased [Recovering/Resolving]
  - Blood bilirubin increased [Recovering/Resolving]
  - Bilirubin conjugated increased [Recovering/Resolving]
  - Blood alkaline phosphatase increased [Recovering/Resolving]
  - Pyrexia [Unknown]
